FAERS Safety Report 9989976 (Version 1)
Quarter: 2014Q1

REPORT INFORMATION
  Report Type: Report from Study
  Country: US (occurrence: US)
  Receive Date: 20140310
  Receipt Date: 20140310
  Transmission Date: 20141002
  Serious: No
  Sender: FDA-Public Use
  Company Number: US-ABBVIE-13P-163-1137103-00

PATIENT
  Age: 60 Year
  Sex: Female

DRUGS (14)
  1. HUMIRA [Suspect]
     Indication: RHEUMATOID ARTHRITIS
     Dates: start: 20130710
  2. CRESTOR [Concomitant]
     Indication: BLOOD TRIGLYCERIDES INCREASED
  3. CRESTOR [Concomitant]
     Indication: BLOOD CHOLESTEROL INCREASED
  4. METOPROLOL [Concomitant]
     Indication: CORONARY ARTERY DISEASE
  5. METFORMIN [Concomitant]
     Indication: DIABETES MELLITUS
  6. ONGLYZA [Concomitant]
     Indication: DIABETES MELLITUS
     Dosage: 5 MG DAILY
  7. LYRICA [Concomitant]
     Indication: NEUROPATHY PERIPHERAL
  8. GLIPIZIDE [Concomitant]
     Indication: DIABETES MELLITUS
  9. SINGULAIR [Concomitant]
     Indication: ASTHMA
     Dosage: 10 MG DAILY
  10. XOPENEX [Concomitant]
     Indication: ASTHMA
  11. LUNESTA [Concomitant]
     Indication: INSOMNIA
     Dosage: AT BEDTIME
  12. ZYRTEC [Concomitant]
     Indication: HYPERSENSITIVITY
     Dosage: DAILY
  13. TRAMADOL [Concomitant]
     Indication: ARTHRALGIA
  14. VOLTATRN [Concomitant]
     Indication: ARTHRALGIA
     Route: 061

REACTIONS (3)
  - Osteoarthritis [Not Recovered/Not Resolved]
  - Headache [Not Recovered/Not Resolved]
  - Pain [Not Recovered/Not Resolved]
